FAERS Safety Report 21752176 (Version 1)
Quarter: 2022Q4

REPORT INFORMATION
  Report Type: Report from Study
  Country: JP (occurrence: JP)
  Receive Date: 20221220
  Receipt Date: 20221220
  Transmission Date: 20230113
  Serious: Yes (Hospitalization)
  Sender: FDA-Public Use
  Company Number: JP-ALNYLAM PHARMACEUTICALS, INC.-ALN-2020-000580

PATIENT

DRUGS (6)
  1. ONPATTRO [Suspect]
     Active Substance: PATISIRAN SODIUM
     Indication: Hereditary neuropathic amyloidosis
     Dosage: 16.5 MILLIGRAM, Q3W
     Route: 041
     Dates: start: 20200330, end: 20210622
  2. ONPATTRO [Suspect]
     Active Substance: PATISIRAN SODIUM
     Dosage: UNK
     Route: 041
     Dates: end: 20221011
  3. DEXAMETHASONE SODIUM PHOSPHATE [Concomitant]
     Active Substance: DEXAMETHASONE SODIUM PHOSPHATE
     Indication: Prophylaxis
     Dosage: 9.9 MILLIGRAM
     Route: 041
     Dates: start: 20200330, end: 20210622
  4. POLARAMINE [Concomitant]
     Active Substance: DEXCHLORPHENIRAMINE MALEATE
     Indication: Prophylaxis
     Dosage: 5 MILLIGRAM
     Route: 041
     Dates: start: 20200330, end: 20210622
  5. GASTER [Concomitant]
     Active Substance: FAMOTIDINE
     Indication: Prophylaxis
     Dosage: 20 MILLIGRAM
     Route: 041
     Dates: start: 20200330, end: 20210622
  6. CALONAL [Concomitant]
     Active Substance: ACETAMINOPHEN
     Indication: Prophylaxis
     Dosage: 500 MILLIGRAM
     Route: 048
     Dates: start: 20200330, end: 20210622

REACTIONS (13)
  - Vascular dementia [Unknown]
  - Bradycardia [Unknown]
  - Oedema peripheral [Recovered/Resolved]
  - Infusion related reaction [Recovered/Resolved]
  - Blood pressure increased [Recovered/Resolved]
  - Infusion related reaction [Recovered/Resolved]
  - Blood pressure increased [Recovered/Resolved]
  - Infusion related reaction [Recovered/Resolved]
  - Blood pressure increased [Recovered/Resolved]
  - Infusion related reaction [Recovered/Resolved]
  - Blood pressure increased [Recovered/Resolved]
  - Infusion related reaction [Recovered/Resolved]
  - Blood pressure increased [Recovered/Resolved]

NARRATIVE: CASE EVENT DATE: 20200401
